FAERS Safety Report 17076793 (Version 3)
Quarter: 2019Q4

REPORT INFORMATION
  Report Type: Spontaneous
  Country: US (occurrence: US)
  Receive Date: 20191126
  Receipt Date: 20191229
  Transmission Date: 20200122
  Serious: Yes (Other)
  Sender: FDA-Public Use
  Company Number: US-AGIOS-1911US01487

PATIENT

DRUGS (5)
  1. TIBSOVO [Suspect]
     Active Substance: IVOSIDENIB
     Indication: MYELODYSPLASTIC SYNDROME
     Dosage: 250 MILLIGRAMS, 2 TABLETS (500 MG), DAILY
     Dates: start: 20190306, end: 201905
  2. TIBSOVO [Suspect]
     Active Substance: IVOSIDENIB
     Indication: ACUTE LEUKAEMIA
     Dosage: 250 MILLIGRAMS, 2 TABLETS (500 MG), DAILY
     Dates: start: 20191113, end: 20191209
  3. DACOGEN [Concomitant]
     Active Substance: DECITABINE
     Indication: CHEMOTHERAPY
     Dosage: UNKNOWN
  4. ACYCLOVIR                          /00587301/ [Concomitant]
     Active Substance: ACYCLOVIR
     Indication: PRODUCT USED FOR UNKNOWN INDICATION
     Dosage: UNKNOWN
  5. CIPROFLOXACIN                      /00697202/ [Concomitant]
     Active Substance: CIPROFLOXACIN HYDROCHLORIDE
     Indication: PRODUCT USED FOR UNKNOWN INDICATION
     Dosage: UNKNOWN

REACTIONS (6)
  - Acute leukaemia [Unknown]
  - Platelet count decreased [Unknown]
  - Off label use [Unknown]
  - Therapy cessation [Unknown]
  - White blood cell count increased [Unknown]
  - Disease progression [Unknown]

NARRATIVE: CASE EVENT DATE: 20180520
